FAERS Safety Report 17181341 (Version 1)
Quarter: 2019Q4

REPORT INFORMATION
  Report Type: Spontaneous
  Country: DE (occurrence: DE)
  Receive Date: 20191220
  Receipt Date: 20191220
  Transmission Date: 20200122
  Serious: Yes (Hospitalization, Other)
  Sender: FDA-Public Use
  Company Number: DE-AUROBINDO-AUR-APL-2019-105745

PATIENT
  Sex: Female
  Weight: 76 kg

DRUGS (3)
  1. COSENTYX [Suspect]
     Active Substance: SECUKINUMAB
     Indication: ANKYLOSING SPONDYLITIS
     Dosage: 150 MILLIGRAM, EVERY WEEK
     Route: 058
     Dates: start: 20180918, end: 201810
  2. PREDNISOLONE. [Concomitant]
     Active Substance: PREDNISOLONE
     Indication: ANKYLOSING SPONDYLITIS
     Dosage: 5 MILLIGRAM, ONCE A DAY
     Route: 048
  3. IBUPROFEN. [Suspect]
     Active Substance: IBUPROFEN
     Indication: ANKYLOSING SPONDYLITIS
     Dosage: ON DEMAND / SELF-MEDICATION)
     Route: 065

REACTIONS (11)
  - Weight decreased [Recovered/Resolved]
  - Overweight [Unknown]
  - Diarrhoea [Recovered/Resolved]
  - Metabolic disorder [Unknown]
  - Crohn^s disease [Recovered/Resolved]
  - Gastrointestinal wall thickening [Recovered/Resolved]
  - Abdominal pain [Recovered/Resolved]
  - Drug abuse [Unknown]
  - Gastrointestinal disorder [Unknown]
  - Erosive duodenitis [Recovered/Resolved]
  - Splenomegaly [Recovered/Resolved]

NARRATIVE: CASE EVENT DATE: 201810
